FAERS Safety Report 18794664 (Version 1)
Quarter: 2021Q1

REPORT INFORMATION
  Report Type: Spontaneous
  Country: CH (occurrence: CH)
  Receive Date: 20210127
  Receipt Date: 20210127
  Transmission Date: 20210419
  Serious: Yes (Life-Threatening, Hospitalization, Other)
  Sender: FDA-Public Use
  Company Number: CH-PFIZER INC-2021055581

PATIENT
  Age: 75 Year
  Sex: Female

DRUGS (13)
  1. VINCRISTINE SULFATE. [Suspect]
     Active Substance: VINCRISTINE SULFATE
     Indication: DIFFUSE LARGE B-CELL LYMPHOMA
     Dosage: 2 MG. R?CHOP REGIMEN, CYCLE DURATION 21 DAYS, 6 CYCLES
     Route: 042
     Dates: start: 20190718, end: 20191121
  2. RIBOMUSTIN [Suspect]
     Active Substance: BENDAMUSTINE HYDROCHLORIDE
     Indication: DIFFUSE LARGE B-CELL LYMPHOMA
     Dosage: 100 MG, DAILY
     Route: 042
     Dates: start: 20201201, end: 20201202
  3. MOVICOL [Concomitant]
     Active Substance: POLYETHYLENE GLYCOL 3350\POTASSIUM CHLORIDE\SODIUM BICARBONATE\SODIUM CHLORIDE
     Dosage: 1 DF, 1X/DAY, 1?0?0?0
     Route: 048
  4. METHOTREXATE. [Concomitant]
     Active Substance: METHOTREXATE
     Indication: PROPHYLAXIS
     Dosage: 2310 MG. 04DEC2019 TO 09JAN2020: 3 CYCLES CNS PROPHYLAXIS
     Route: 042
     Dates: start: 20191204, end: 20200109
  5. JARDIANCE [Concomitant]
     Active Substance: EMPAGLIFLOZIN
     Dosage: 10 MG, 1X/DAY, 1?0?0?0
  6. ELIQUIS [Concomitant]
     Active Substance: APIXABAN
     Dosage: 5 MG, 2X/DAY, 1?0?1?0
     Route: 048
  7. MABTHERA [Suspect]
     Active Substance: RITUXIMAB
     Dosage: 600 MG IN TOTAL
     Route: 042
     Dates: start: 20201201, end: 20201201
  8. TOREM [TORASEMIDE] [Concomitant]
     Active Substance: TORSEMIDE
     Dosage: 5 MG, 1X/DAY, 1?0?0?0
     Route: 048
  9. ADRIBLASTIN [Suspect]
     Active Substance: DOXORUBICIN HYDROCHLORIDE
     Indication: DIFFUSE LARGE B-CELL LYMPHOMA
     Dosage: 75 MG. R?CHOP REGIMEN, CYCLE DURATION 21 DAYS, 6 CYCLES
     Route: 042
     Dates: start: 20190718, end: 20191121
  10. MABTHERA [Suspect]
     Active Substance: RITUXIMAB
     Indication: DIFFUSE LARGE B-CELL LYMPHOMA
     Dosage: 550 MG. R?CHOP REGIMEN, CYCLE DURATION 21 DAYS, 6 CYCLES
     Route: 042
     Dates: start: 20190718, end: 20191121
  11. ENDOXAN [CYCLOPHOSPHAMIDE MONOHYDRATE] [Suspect]
     Active Substance: CYCLOPHOSPHAMIDE
     Indication: DIFFUSE LARGE B-CELL LYMPHOMA
     Dosage: 1100MG. R?CHOP REGIMEN, CYCLE DURATION 21 DAYS, 6 CYCLES
     Route: 042
     Dates: start: 20190718, end: 20191121
  12. SPIRICORT [Suspect]
     Active Substance: PREDNISOLONE
     Indication: DIFFUSE LARGE B-CELL LYMPHOMA
     Dosage: 100 MG /DAY, FROM DAY 1 TO 5
     Route: 048
     Dates: start: 20190718, end: 20191121
  13. CANDESARTAN SANDOZ [Concomitant]
     Active Substance: CANDESARTAN
     Dosage: 8 MG, 1X/DAY, 1?0?0?0
     Route: 048

REACTIONS (3)
  - Pulmonary oedema [Recovering/Resolving]
  - Cardiomyopathy [Unknown]
  - Anaphylactic reaction [Recovered/Resolved]

NARRATIVE: CASE EVENT DATE: 20201202
